FAERS Safety Report 4448222-8 (Version None)
Quarter: 2004Q3

REPORT INFORMATION
  Report Type: 
  Country: None (occurrence: None)
  Receive Date: 20040913
  Receipt Date: 20030529
  Transmission Date: 20050211
  Serious: Yes (Other)
  Sender: FDA-Public Use
  Company Number: PHHO2003US06965

PATIENT
  Age: 60 Year
  Sex: Female
  Weight: 77 kg

DRUGS (4)
  1. ERL 080A [Suspect]
     Indication: RENAL TRANSPLANT
     Dosage: 2 TABLETS, BID
     Route: 048
     Dates: start: 20001020
  2. NEORAL [Suspect]
     Indication: RENAL TRANSPLANT
     Dosage: 100 MG, BID
     Route: 048
     Dates: start: 20010413
  3. NEORAL [Suspect]
     Dosage: UNKNOWN
     Route: 048
     Dates: start: 19991021
  4. PREDNISONE [Suspect]
     Indication: RENAL TRANSPLANT
     Dosage: 7.5 MG, QD
     Route: 048
     Dates: start: 20011018

REACTIONS (8)
  - ACTINIC KERATOSIS [None]
  - BASAL CELL CARCINOMA [None]
  - CARCINOMA EXCISION [None]
  - SCAR [None]
  - SKIN NEOPLASM EXCISION [None]
  - SKIN NODULE [None]
  - SKIN ULCER [None]
  - SQUAMOUS CELL CARCINOMA [None]
